FAERS Safety Report 8990770 (Version 1)
Quarter: 2012Q4

REPORT INFORMATION
  Report Type: Report from Study
  Country: DE (occurrence: DE)
  Receive Date: 20121228
  Receipt Date: 20121228
  Transmission Date: 20130627
  Serious: Yes (Hospitalization)
  Sender: FDA-Public Use
  Company Number: DE-ROCHE-1174920

PATIENT
  Age: 51 Year
  Sex: Female

DRUGS (8)
  1. RITUXIMAB [Suspect]
     Indication: RHEUMATOID ARTHRITIS
     Route: 065
     Dates: start: 20080601
  2. RITUXIMAB [Suspect]
     Route: 065
     Dates: start: 20090407
  3. RITUXIMAB [Suspect]
     Route: 065
     Dates: start: 20100217
  4. RITUXIMAB [Suspect]
     Route: 065
     Dates: start: 20101013
  5. RITUXIMAB [Suspect]
     Route: 065
     Dates: start: 20110622
  6. LANTAREL [Suspect]
     Indication: RHEUMATOID ARTHRITIS
     Route: 051
     Dates: start: 200806
  7. DECORTIN [Concomitant]
     Route: 065
  8. PANTOPRAZOL [Concomitant]
     Route: 065

REACTIONS (1)
  - Thyroid cancer [Recovered/Resolved]
